FAERS Safety Report 7000001-3 (Version None)
Quarter: 2010Q3

REPORT INFORMATION
  Report Type: 
  Country: None (occurrence: None)
  Receive Date: 20100920
  Receipt Date: 20100616
  Transmission Date: 20110219
  Serious: No
  Sender: FDA-Public Use
  Company Number: US-ASTRAZENECA-2010SE31179

PATIENT
  Age: 18693 Day
  Sex: Female
  Weight: 127 kg

DRUGS (14)
  1. SEROQUEL [Suspect]
     Route: 048
     Dates: start: 20030313
  2. SEROQUEL [Suspect]
     Route: 048
     Dates: start: 20030718
  3. SEROQUEL [Suspect]
     Route: 048
     Dates: start: 20041104
  4. SEROQUEL [Suspect]
     Route: 048
     Dates: start: 20051121
  5. MIRTAZAPINE [Concomitant]
     Dates: start: 20030818
  6. CLONAZEPAM [Concomitant]
     Dates: start: 20030719
  7. PROPRANOLOL [Concomitant]
     Dates: start: 20030719
  8. PROPRANOLOL [Concomitant]
     Dates: start: 20041104
  9. LISINOPRIL [Concomitant]
     Dates: start: 20041104
  10. KLONOPIN [Concomitant]
     Dates: start: 20041104
  11. TRAZODONE HCL [Concomitant]
     Dates: start: 20041104
  12. REMERON [Concomitant]
     Dates: start: 20041104
  13. PROTONIX [Concomitant]
     Dates: start: 20041104
  14. LIPITOR [Concomitant]
     Dates: start: 20041104

REACTIONS (20)
  - ANXIETY [None]
  - BACK PAIN [None]
  - BLOOD CHOLESTEROL INCREASED [None]
  - BLOOD PRESSURE INCREASED [None]
  - CHRONIC OBSTRUCTIVE PULMONARY DISEASE [None]
  - DEPRESSION [None]
  - DERMATITIS [None]
  - DERMATOPHYTOSIS [None]
  - DIABETES MELLITUS INADEQUATE CONTROL [None]
  - DYSTHYMIC DISORDER [None]
  - GASTROOESOPHAGEAL REFLUX DISEASE [None]
  - HYPERLIPIDAEMIA [None]
  - HYPERTENSION [None]
  - HYPERTENSIVE HEART DISEASE [None]
  - JOINT SWELLING [None]
  - MIXED HYPERLIPIDAEMIA [None]
  - OBESITY [None]
  - RHINITIS SEASONAL [None]
  - SLEEP DISORDER [None]
  - TYPE 2 DIABETES MELLITUS [None]
